FAERS Safety Report 14100577 (Version 1)
Quarter: 2017Q4

REPORT INFORMATION
  Report Type: Spontaneous
  Country: AU (occurrence: AU)
  Receive Date: 20171017
  Receipt Date: 20171017
  Transmission Date: 20180321
  Serious: Yes (Other)
  Sender: FDA-Public Use
  Company Number: AU-MYLANLABS-2017M1064106

PATIENT
  Age: 4 Year
  Sex: Male

DRUGS (5)
  1. ADZOPIP [Concomitant]
     Indication: PROPHYLAXIS
     Dosage: UNK
     Route: 065
  2. AZITHROMYCIN ANHYDROUS. [Suspect]
     Active Substance: AZITHROMYCIN ANHYDROUS
     Dosage: 85MG (5MG/KG) DAILY
     Route: 042
  3. AZITHROMYCIN ANHYDROUS. [Suspect]
     Active Substance: AZITHROMYCIN ANHYDROUS
     Indication: RESPIRATORY TRACT INFECTION FUNGAL
     Dosage: 170MG(10MG/KG) THEN, 85MG (5MG/KG) DAILY
     Route: 042
  4. AMPHOTERICIN B LIPID COMPLEX [Concomitant]
     Active Substance: AMPHOTERICIN B
     Indication: RESPIRATORY TRACT INFECTION
     Dosage: 60 MG
     Route: 042
  5. AMIKACIN [Concomitant]
     Active Substance: AMIKACIN
     Indication: PROPHYLAXIS
     Route: 042

REACTIONS (4)
  - Hypothermia [Recovered/Resolved]
  - Bradycardia [Recovered/Resolved]
  - Unmasking of previously unidentified disease [Unknown]
  - Conduction disorder [Unknown]
